FAERS Safety Report 12017853 (Version 1)
Quarter: 2016Q1

REPORT INFORMATION
  Report Type: Report from Study
  Country: US (occurrence: US)
  Receive Date: 20160205
  Receipt Date: 20160205
  Transmission Date: 20160526
  Serious: No
  Sender: FDA-Public Use
  Company Number: US-ABBVIE-15K-163-1455873-00

PATIENT
  Sex: Female

DRUGS (3)
  1. HUMIRA [Suspect]
     Active Substance: ADALIMUMAB
     Indication: RHEUMATOID ARTHRITIS
     Route: 065
     Dates: end: 2013
  2. ACTEMRA [Suspect]
     Active Substance: TOCILIZUMAB
     Indication: PRODUCT USED FOR UNKNOWN INDICATION
     Route: 065
     Dates: end: 2015
  3. ENBREL [Suspect]
     Active Substance: ETANERCEPT
     Indication: PRODUCT USED FOR UNKNOWN INDICATION
     Route: 065

REACTIONS (10)
  - Hordeolum [Not Recovered/Not Resolved]
  - Eye infection [Unknown]
  - Localised infection [Unknown]
  - Drug ineffective [Unknown]
  - Weight increased [Unknown]
  - Blood cholesterol increased [Unknown]
  - Urticaria [Unknown]
  - Herpes zoster [Unknown]
  - Eye ulcer [Unknown]
  - Drug effect incomplete [Not Recovered/Not Resolved]
